FAERS Safety Report 11524127 (Version 2)
Quarter: 2015Q4

REPORT INFORMATION
  Report Type: Report from Study
  Country: US (occurrence: US)
  Receive Date: 20150918
  Receipt Date: 20151102
  Transmission Date: 20160304
  Serious: Yes (Other)
  Sender: FDA-Public Use
  Company Number: PHEH2015US017719

PATIENT
  Age: 61 Year
  Sex: Female
  Weight: 53.18 kg

DRUGS (15)
  1. GLEEVEC [Suspect]
     Active Substance: IMATINIB MESYLATE
     Dosage: 100 MG, TID
     Route: 048
     Dates: start: 20150824
  2. CARAFATE [Concomitant]
     Active Substance: SUCRALFATE
     Indication: PRODUCT USED FOR UNKNOWN INDICATION
     Dosage: 2 TSP, QID, 1 GM/10 ML, SUSPENSION
     Route: 048
     Dates: start: 20150722
  3. VALACYCLOVIR HCL [Concomitant]
     Active Substance: VALACYCLOVIR HYDROCHLORIDE
     Indication: PRODUCT USED FOR UNKNOWN INDICATION
     Dosage: 1 DF, Q12H, TABLET
     Route: 048
     Dates: start: 20151008
  4. CITALOPRAM HYDROBROMIDE. [Concomitant]
     Active Substance: CITALOPRAM HYDROBROMIDE
     Indication: PRODUCT USED FOR UNKNOWN INDICATION
     Dosage: 1 DF, QD, TABLET
     Route: 048
     Dates: start: 20150625
  5. DIAZEPAM. [Concomitant]
     Active Substance: DIAZEPAM
     Indication: PRODUCT USED FOR UNKNOWN INDICATION
     Dosage: 1 DF, QID, PRN, TABLET
     Route: 048
     Dates: start: 20150707
  6. MS CONTIN [Concomitant]
     Active Substance: MORPHINE SULFATE
     Indication: PRODUCT USED FOR UNKNOWN INDICATION
     Dosage: 15 MG, Q12H, TABLET
     Route: 048
     Dates: start: 20150710
  7. PROBIOTICS NOS [Concomitant]
     Active Substance: PROBIOTICS NOS
     Indication: PRODUCT USED FOR UNKNOWN INDICATION
     Dosage: SUFFICIENT CAPSULE
     Route: 048
     Dates: start: 20150914
  8. VALIUM [Concomitant]
     Active Substance: DIAZEPAM
     Indication: PRODUCT USED FOR UNKNOWN INDICATION
     Dosage: PRN
     Route: 065
  9. FERROUS SULFATE [Concomitant]
     Active Substance: FERROUS SULFATE\FERROUS SULFATE, DRIED
     Indication: PRODUCT USED FOR UNKNOWN INDICATION
     Dosage: 1 DF, TID, WITH FOOD, TABLET
     Route: 048
     Dates: start: 20150625
  10. VICODIN [Concomitant]
     Active Substance: ACETAMINOPHEN\HYDROCODONE BITARTRATE
     Indication: PAIN
     Dosage: 5-300 MG TABLET EVERY 4-6 HOURS
     Route: 048
     Dates: start: 20150630
  11. MORPHINE [Concomitant]
     Active Substance: MORPHINE
     Indication: PRODUCT USED FOR UNKNOWN INDICATION
     Dosage: PRN
     Route: 065
  12. GLEEVEC [Suspect]
     Active Substance: IMATINIB MESYLATE
     Indication: GASTROINTESTINAL STROMAL TUMOUR
     Dosage: 400 MG, QD
     Route: 065
  13. DIAZEPAM. [Concomitant]
     Active Substance: DIAZEPAM
     Dosage: UNK
     Route: 048
     Dates: start: 20150624
  14. ESTRACE [Concomitant]
     Active Substance: ESTRADIOL
     Indication: PRODUCT USED FOR UNKNOWN INDICATION
     Dosage: PEA SIZED AMOUNT TO VAGINAL OPENING EVERY MONDAY, WEDNESDAY AND FRIDAY EVENING
     Route: 065
     Dates: start: 20150514
  15. GLEEVEC [Suspect]
     Active Substance: IMATINIB MESYLATE
     Dosage: 300 MG, QD
     Route: 048
     Dates: start: 20150709

REACTIONS (24)
  - Febrile neutropenia [Unknown]
  - Abdominal pain [Recovering/Resolving]
  - Epistaxis [Unknown]
  - Thinking abnormal [Unknown]
  - Dyspepsia [Unknown]
  - Leukopenia [Unknown]
  - Hearing impaired [Unknown]
  - White blood cell count decreased [Recovered/Resolved]
  - Infection [Recovered/Resolved]
  - Abdominal discomfort [Unknown]
  - Memory impairment [Unknown]
  - Weight increased [Unknown]
  - Constipation [Recovering/Resolving]
  - Peripheral coldness [Unknown]
  - Contusion [Recovered/Resolved]
  - Gastritis [Unknown]
  - Fatigue [Unknown]
  - Melaena [Recovered/Resolved]
  - Hypoaesthesia [Unknown]
  - Attention deficit/hyperactivity disorder [Unknown]
  - Nausea [Unknown]
  - Headache [Recovered/Resolved]
  - Diarrhoea [Recovered/Resolved]
  - Insomnia [Unknown]

NARRATIVE: CASE EVENT DATE: 20150818
